FAERS Safety Report 6360914-2 (Version None)
Quarter: 2009Q3

REPORT INFORMATION
  Report Type: 
  Country: None (occurrence: None)
  Receive Date: 20090918
  Receipt Date: 20090909
  Transmission Date: 20100115
  Serious: Yes (Other)
  Sender: FDA-Public Use
  Company Number: US-NOVOPROD-290932

PATIENT
  Age: 71 Year
  Sex: Male
  Weight: 90.703 kg

DRUGS (3)
  1. NOVOLIN N INNOLET [Suspect]
     Indication: TYPE 2 DIABETES MELLITUS
     Dosage: 30 TO 40 UNITS, BID
     Route: 058
     Dates: start: 20000101
  2. GLYBURIDE [Concomitant]
     Indication: TYPE 2 DIABETES MELLITUS
     Route: 048
  3. LEVOXYL [Concomitant]
     Indication: HYPOTHYROIDISM
     Dosage: .15 UG, QD
     Route: 048

REACTIONS (1)
  - COLORECTAL CANCER STAGE III [None]
